FAERS Safety Report 7493684-5 (Version None)
Quarter: 2011Q2

REPORT INFORMATION
  Report Type: 
  Country: None (occurrence: None)
  Receive Date: 20110520
  Receipt Date: 20110511
  Transmission Date: 20111010
  Serious: Yes (Death, Other)
  Sender: FDA-Public Use
  Company Number: NL-TEVA-282037ISR

PATIENT
  Age: 89 Year
  Sex: Male

DRUGS (1)
  1. ALBUTEROL SULFATE AND IPRATROPIUM BROMIDE [Suspect]
     Dosage: UNIT DOSE: 2.5. MG AND 0.5 MG IN 2.5 ML

REACTIONS (3)
  - CYANOSIS [None]
  - INCORRECT ROUTE OF DRUG ADMINISTRATION [None]
  - LOSS OF CONSCIOUSNESS [None]
